FAERS Safety Report 6937481-5 (Version None)
Quarter: 2010Q3

REPORT INFORMATION
  Report Type: 
  Country: None (occurrence: None)
  Receive Date: 20100823
  Receipt Date: 20100823
  Transmission Date: 20110219
  Serious: Yes (Other)
  Sender: FDA-Public Use
  Company Number: None

PATIENT
  Age: 58 Year
  Sex: Male
  Weight: 90.7194 kg

DRUGS (1)
  1. PEGASYS [Suspect]
     Indication: HEPATITIS C
     Dosage: 180 MCG -0.5 ML- EVERY WEEK SQ
     Route: 058
     Dates: start: 20090811, end: 20100630

REACTIONS (2)
  - PAIN IN EXTREMITY [None]
  - SKIN LESION [None]
